FAERS Safety Report 13810453 (Version 5)
Quarter: 2018Q2

REPORT INFORMATION
  Report Type: Report from Study
  Country: US (occurrence: US)
  Receive Date: 20170728
  Receipt Date: 20180418
  Transmission Date: 20180711
  Serious: Yes (Hospitalization)
  Sender: FDA-Public Use
  Company Number: US-ACTELION-A-US2016-134768

PATIENT
  Age: 51 Year
  Sex: Female

DRUGS (23)
  1. GABAPEN [Concomitant]
     Active Substance: GABAPENTIN
  2. VITAMIN C [Concomitant]
     Active Substance: ASCORBIC ACID
  3. CYCLOBENZAPRINE. [Concomitant]
     Active Substance: CYCLOBENZAPRINE
  4. LEVOXYL [Concomitant]
     Active Substance: LEVOTHYROXINE SODIUM
  5. LEVOTHYROXINE SODIUM. [Concomitant]
     Active Substance: LEVOTHYROXINE SODIUM
  6. FUROSEMIDE. [Concomitant]
     Active Substance: FUROSEMIDE
  7. POTASSIUM CHLORIDE. [Concomitant]
     Active Substance: POTASSIUM CHLORIDE
  8. OPSUMIT [Suspect]
     Active Substance: MACITENTAN
     Indication: PULMONARY ARTERIAL HYPERTENSION
     Dosage: 10 MG, QD
     Route: 048
  9. ZOFRAN [Concomitant]
     Active Substance: ONDANSETRON HYDROCHLORIDE
  10. LORAZEPAM. [Concomitant]
     Active Substance: LORAZEPAM
  11. LOVASTATIN ACTAVIS [Concomitant]
  12. PIROXICAM. [Concomitant]
     Active Substance: PIROXICAM
  13. SILDENAFIL. [Suspect]
     Active Substance: SILDENAFIL
     Indication: PRODUCT USED FOR UNKNOWN INDICATION
     Dosage: 20 MG, QD
     Route: 065
     Dates: start: 20170505
  14. MULTIVITAMIN [Concomitant]
     Active Substance: VITAMINS
  15. TRAMADOL. [Concomitant]
     Active Substance: TRAMADOL
  16. CYTOMEL [Concomitant]
     Active Substance: LIOTHYRONINE SODIUM
  17. METOPROLOL SUCCINATE. [Concomitant]
     Active Substance: METOPROLOL SUCCINATE
  18. ACIDOPHILUS PROBIOTIC [Concomitant]
  19. CRANBERRY. [Concomitant]
     Active Substance: CRANBERRY
  20. PREDNISONE. [Concomitant]
     Active Substance: PREDNISONE
  21. ALPRAZOLAM. [Concomitant]
     Active Substance: ALPRAZOLAM
  22. RIZATRIPTAN. [Concomitant]
     Active Substance: RIZATRIPTAN
  23. SYNTHROID [Concomitant]
     Active Substance: LEVOTHYROXINE SODIUM

REACTIONS (21)
  - Sinusitis [Unknown]
  - Productive cough [Unknown]
  - Hypotension [Unknown]
  - Staphylococcus test positive [Unknown]
  - Sputum discoloured [Unknown]
  - Musculoskeletal chest pain [Unknown]
  - Vertigo [Unknown]
  - Dyspnoea [Not Recovered/Not Resolved]
  - Viral infection [Unknown]
  - Fall [Unknown]
  - Limb injury [Unknown]
  - Pyrexia [Unknown]
  - Drug dose omission [Recovered/Resolved]
  - Rhinorrhoea [Unknown]
  - Dizziness [Unknown]
  - Headache [Unknown]
  - Sinus headache [Unknown]
  - Sneezing [Unknown]
  - Nasal discharge discolouration [Unknown]
  - Upper respiratory tract infection [Unknown]
  - Heart rate increased [Not Recovered/Not Resolved]

NARRATIVE: CASE EVENT DATE: 20160620
